FAERS Safety Report 14293787 (Version 2)
Quarter: 2018Q2

REPORT INFORMATION
  Report Type: Report from Study
  Country: US (occurrence: US)
  Receive Date: 20171216
  Receipt Date: 20180503
  Transmission Date: 20180711
  Serious: Yes (Hospitalization, Other)
  Sender: FDA-Public Use
  Company Number: US-ROCHE-2037677

PATIENT
  Age: 63 Year
  Sex: Female
  Weight: 102 kg

DRUGS (16)
  1. SPIRONOLACTONE. [Concomitant]
     Active Substance: SPIRONOLACTONE
     Route: 048
     Dates: start: 20160906
  2. SUBLIMAZE [Concomitant]
     Active Substance: FENTANYL CITRATE
     Dosage: 2,500MCG/50ML
     Route: 042
     Dates: start: 20160731
  3. PLAQUENIL [Concomitant]
     Active Substance: HYDROXYCHLOROQUINE SULFATE
     Indication: SCLERODERMA
     Route: 048
  4. FLONASE [Concomitant]
     Active Substance: FLUTICASONE PROPIONATE
     Indication: SINUSITIS
     Route: 065
  5. BIOTIN [Concomitant]
     Active Substance: BIOTIN
     Indication: PERIPHERAL SWELLING
     Route: 048
  6. ALBUTEROL. [Concomitant]
     Active Substance: ALBUTEROL
     Indication: ASTHMA
     Route: 065
  7. ACETAMINOPHEN W/OXYCODONE [Concomitant]
     Active Substance: ACETAMINOPHEN\OXYCODONE HYDROCHLORIDE
     Indication: BACK PAIN
     Route: 048
  8. ASPIRIN. [Concomitant]
     Active Substance: ASPIRIN
     Route: 048
  9. TRIAMTERENE AND HYDROCHLOROTHIAZIDE [Concomitant]
     Active Substance: HYDROCHLOROTHIAZIDE\TRIAMTERENE
     Indication: FLUID RETENTION
     Route: 048
  10. IBUPROFEN. [Concomitant]
     Active Substance: IBUPROFEN
     Indication: ARTHRALGIA
     Route: 048
  11. IBUPROFEN. [Concomitant]
     Active Substance: IBUPROFEN
     Indication: BACK PAIN
  12. PREVACID [Concomitant]
     Active Substance: LANSOPRAZOLE
     Indication: REFLUX GASTRITIS
     Route: 048
  13. ALLEGRA [Concomitant]
     Active Substance: FEXOFENADINE HYDROCHLORIDE
     Indication: HYPERSENSITIVITY
     Route: 048
  14. BLINDED RITUXIMAB [Suspect]
     Active Substance: RITUXIMAB
     Indication: SYSTEMIC SCLERODERMA
     Dosage: 2 INFUSIONS, 1000 MG. EACH, 14 DAYS APART (AS PER PROTOCOL)
     Route: 042
     Dates: start: 20160718, end: 20160718
  15. NIFEDIPINE. [Concomitant]
     Active Substance: NIFEDIPINE
     Route: 048
  16. ADVAIR HFA [Concomitant]
     Active Substance: FLUTICASONE PROPIONATE\SALMETEROL XINAFOATE
     Indication: ASTHMA
     Route: 065

REACTIONS (3)
  - Fluid overload [Recovered/Resolved]
  - Drug hypersensitivity [Recovered/Resolved]
  - Pulmonary arterial hypertension [Recovered/Resolved]

NARRATIVE: CASE EVENT DATE: 20160725
